FAERS Safety Report 8375166-1 (Version None)
Quarter: 2012Q2

REPORT INFORMATION
  Report Type: 
  Country: None (occurrence: None)
  Receive Date: 20120521
  Receipt Date: 20120508
  Transmission Date: 20120825
  Serious: Yes (Other)
  Sender: FDA-Public Use
  Company Number: FR-MYLANLABS-2012S1009752

PATIENT
  Age: 87 Year

DRUGS (11)
  1. ROCURONIUM BROMIDE [Suspect]
     Indication: INDUCTION OF ANAESTHESIA
     Dosage: SINGLE DOSE
     Route: 065
  2. TRAMADOL HYDROCHLORIDE [Concomitant]
     Indication: POSTOPERATIVE ANALGESIA
     Dosage: 100MG
     Route: 065
  3. ETOMIDATE [Concomitant]
     Indication: INDUCTION OF ANAESTHESIA
     Dosage: 0.4 MG/KG
     Route: 065
  4. SEVOFLURANE [Concomitant]
     Indication: MAINTENANCE OF ANAESTHESIA
     Route: 065
  5. MAGNESIUM SULFATE [Concomitant]
     Indication: ATRIAL FIBRILLATION
     Dosage: 2G
     Route: 065
  6. SODIUM BICARBONATE [Concomitant]
     Indication: HYPERKALAEMIA
     Route: 041
  7. ACETAMINOPHEN [Concomitant]
     Indication: POSTOPERATIVE ANALGESIA
     Dosage: 1G
     Route: 065
  8. SUFENTANIL CITRATE [Concomitant]
     Indication: GENERAL ANAESTHESIA
     Dosage: 0.15 MG/KG
     Route: 065
  9. SUFENTANIL CITRATE [Concomitant]
     Indication: MAINTENANCE OF ANAESTHESIA
     Dosage: REPEAT BOLUSES
     Route: 065
  10. AMOXICILLIN AND CLAVULANATE POTASSIUM [Concomitant]
     Indication: ANTIBIOTIC PROPHYLAXIS
     Dosage: 2G
     Route: 065
  11. AMIODARONE HCL [Concomitant]
     Indication: ATRIAL FIBRILLATION
     Dosage: 300MG
     Route: 065

REACTIONS (1)
  - NEUROMUSCULAR BLOCK PROLONGED [None]
